FAERS Safety Report 9343616 (Version 2)
Quarter: 2013Q3

REPORT INFORMATION
  Report Type: Spontaneous
  Country: US (occurrence: US)
  Receive Date: 20130612
  Receipt Date: 20130705
  Transmission Date: 20140515
  Serious: No
  Sender: FDA-Public Use
  Company Number: US-B.I. PHARMACEUTICALS,INC./RIDGEFIELD-2013-BI-15991BP

PATIENT
  Age: 63 Year
  Sex: Female

DRUGS (2)
  1. COMBIVENT [Suspect]
     Indication: HYPERSENSITIVITY
     Dosage: STRENGTH: 18 MCG / 103 MCG
     Route: 055
     Dates: start: 2003, end: 20130527
  2. COMBIVENT [Suspect]
     Indication: HYPERSENSITIVITY
     Dosage: STRENGTH: 20 MCG / 100 MCG;
     Route: 055
     Dates: start: 20130528

REACTIONS (3)
  - Cough [Not Recovered/Not Resolved]
  - Chest discomfort [Not Recovered/Not Resolved]
  - Wheezing [Not Recovered/Not Resolved]
